FAERS Safety Report 21575164 (Version 1)
Quarter: 2022Q4

REPORT INFORMATION
  Report Type: Spontaneous
  Country: US (occurrence: US)
  Receive Date: 20221110
  Receipt Date: 20221110
  Transmission Date: 20230113
  Serious: Yes (Other)
  Sender: FDA-Public Use
  Company Number: US-SA-SAC20221107000334

PATIENT
  Age: 45 Year
  Sex: Female

DRUGS (1)
  1. ZANTAC [Suspect]
     Active Substance: RANITIDINE HYDROCHLORIDE
     Indication: Gastrooesophageal reflux disease
     Dosage: UNK QD
     Route: 065
     Dates: start: 198401, end: 201901

REACTIONS (2)
  - Breast cancer stage III [Unknown]
  - Ovarian cancer stage III [Unknown]

NARRATIVE: CASE EVENT DATE: 20010101
